FAERS Safety Report 10810628 (Version 1)
Quarter: 2015Q1

REPORT INFORMATION
  Report Type: Spontaneous
  Country: US (occurrence: None)
  Receive Date: 20150213
  Receipt Date: 20150213
  Transmission Date: 20150721
  Serious: No
  Sender: FDA-Public Use
  Company Number: None

PATIENT
  Age: 58 Year
  Sex: Female
  Weight: 51.71 kg

DRUGS (4)
  1. ESTRING [Suspect]
     Active Substance: ESTRADIOL
  2. CALCIUM CITRATE [Concomitant]
     Active Substance: CALCIUM CITRATE
  3. VITAMIN D3 [Concomitant]
     Active Substance: CHOLECALCIFEROL
  4. DIMETHYL SULFONE\GLUCOSAMINE SULFATE [Concomitant]
     Active Substance: DIMETHYL SULFONE\GLUCOSAMINE SULFATE

REACTIONS (10)
  - Mental impairment [None]
  - Unevaluable event [None]
  - Back pain [None]
  - Pollakiuria [None]
  - Abdominal pain [None]
  - Mood swings [None]
  - Nausea [None]
  - Dizziness [None]
  - Abdominal distension [None]
  - Confusional state [None]

NARRATIVE: CASE EVENT DATE: 20140203
